FAERS Safety Report 7686143-8 (Version None)
Quarter: 2011Q3

REPORT INFORMATION
  Report Type: 
  Country: None (occurrence: None)
  Receive Date: 20110816
  Receipt Date: 20110810
  Transmission Date: 20111222
  Serious: No
  Sender: FDA-Public Use
  Company Number: US-PFIZER INC-2011185235

PATIENT
  Sex: Male
  Weight: 93 kg

DRUGS (7)
  1. LYRICA [Suspect]
     Dosage: UNK
     Route: 048
     Dates: end: 20110101
  2. LIPITOR [Suspect]
     Dosage: UNK
     Route: 048
  3. LIPITOR [Suspect]
     Dosage: 5 MG, FREQUENCY NOT PROVIDED
     Route: 048
  4. LYRICA [Suspect]
     Indication: ARTHROPATHY
     Dosage: 50 MG, 1X/DAY
     Route: 048
  5. LIPITOR [Suspect]
     Indication: BLOOD CHOLESTEROL INCREASED
     Dosage: 40 MG, UNK
     Route: 048
  6. LIPITOR [Suspect]
     Dosage: 10 MG, DAILY
     Route: 048
  7. DEXMETHYLPHENIDATE HYDROCHLORIDE [Suspect]
     Indication: ATTENTION DEFICIT/HYPERACTIVITY DISORDER
     Dosage: 10 MG, UNK
     Route: 048
     Dates: end: 20110101

REACTIONS (2)
  - ARTHRALGIA [None]
  - DRUG INEFFECTIVE [None]
